FAERS Safety Report 6124654-7 (Version None)
Quarter: 2009Q1

REPORT INFORMATION
  Report Type: 
  Country: None (occurrence: None)
  Receive Date: 20090319
  Receipt Date: 20090312
  Transmission Date: 20090719
  Serious: Yes (Other)
  Sender: FDA-Public Use
  Company Number: B0565622A

PATIENT
  Age: 35 Year
  Sex: Male

DRUGS (2)
  1. KIVEXA [Suspect]
     Indication: DRUG USE FOR UNKNOWN INDICATION
     Route: 065
  2. NEVIRAPINE [Concomitant]
     Indication: DRUG USE FOR UNKNOWN INDICATION
     Route: 065

REACTIONS (1)
  - CHORIORETINOPATHY [None]
